FAERS Safety Report 7954689-0 (Version None)
Quarter: 2011Q4

REPORT INFORMATION
  Report Type: 
  Country: None (occurrence: None)
  Receive Date: 20111202
  Receipt Date: 20111130
  Transmission Date: 20120403
  Serious: Yes (Death)
  Sender: FDA-Public Use
  Company Number: PHHY2011AR104988

PATIENT
  Sex: Female

DRUGS (1)
  1. EXELON [Suspect]
     Dosage: 4.6 MG/ 24 HOURS
     Route: 062

REACTIONS (3)
  - CARDIOGENIC SHOCK [None]
  - ESCHAR [None]
  - SEPSIS [None]
